FAERS Safety Report 8366094-6 (Version None)
Quarter: 2012Q2

REPORT INFORMATION
  Report Type: 
  Country: None (occurrence: None)
  Receive Date: 20120516
  Receipt Date: 20120516
  Transmission Date: 20120825
  Serious: Yes (Other)
  Sender: FDA-Public Use
  Company Number: None

PATIENT
  Age: 53 Year
  Sex: Female
  Weight: 72.5755 kg

DRUGS (1)
  1. ZYPREXA [Suspect]
     Indication: VICTIM OF SEXUAL ABUSE
     Dosage: 10 MG. ONCE DAILY
     Dates: start: 20060101, end: 20120101

REACTIONS (9)
  - ALOPECIA [None]
  - ABNORMAL DREAMS [None]
  - OEDEMA PERIPHERAL [None]
  - HYPERSOMNIA [None]
  - ROSACEA [None]
  - ACTIVITIES OF DAILY LIVING IMPAIRED [None]
  - NAUSEA [None]
  - SOMNOLENCE [None]
  - DYSSTASIA [None]
